FAERS Safety Report 24415083 (Version 1)
Quarter: 2024Q4

REPORT INFORMATION
  Report Type: Spontaneous
  Country: EG (occurrence: EG)
  Receive Date: 20241009
  Receipt Date: 20241009
  Transmission Date: 20250115
  Serious: Yes (Hospitalization, Other)
  Sender: HIKMA
  Company Number: EG-HIKMA PHARMACEUTICALS-EG-H14001-24-09206

PATIENT
  Age: 62 Year
  Sex: Female
  Weight: 64 kg

DRUGS (7)
  1. CARBOPLATIN [Suspect]
     Active Substance: CARBOPLATIN
     Indication: Breast cancer metastatic
     Dosage: 150 MILLIGRAM, THE DOSE OF THE FIRST WEEK.
     Route: 042
     Dates: start: 20240801
  2. CARBOPLATIN [Suspect]
     Active Substance: CARBOPLATIN
     Indication: Metastases to liver
     Dosage: 150 MILLIGRAM, THE SECOND WEEK OF THE PROTOCOL
     Route: 042
     Dates: start: 20240808
  3. CARBOPLATIN [Suspect]
     Active Substance: CARBOPLATIN
     Indication: Metastases to lung
     Dosage: 150 MILLIGRAM, THE THIRD WEEK OF THE TREATMENT PROTOCOL
     Route: 042
     Dates: start: 20240815
  4. PACLITAXEL [Suspect]
     Active Substance: PACLITAXEL
     Indication: Breast cancer metastatic
     Dosage: 100 MILLIGRAM, THE DOSE OF THE FIRST WEEK
     Route: 042
     Dates: start: 20240801
  5. PACLITAXEL [Suspect]
     Active Substance: PACLITAXEL
     Indication: Metastases to liver
     Dosage: 100 MILLIGRAM, THE SECOND WEEK OF THE PROTOCOL
     Route: 042
     Dates: start: 20240808
  6. PACLITAXEL [Suspect]
     Active Substance: PACLITAXEL
     Indication: Metastases to lung
     Dosage: 100 MILLIGRAM, THE THIRD WEEK OF THE TREATMENT PROTOCOL
     Route: 042
     Dates: start: 20240815
  7. ELIQUIS [Concomitant]
     Active Substance: APIXABAN
     Indication: Atrial fibrillation
     Dosage: UNKNOWN
     Route: 048

REACTIONS (4)
  - Diarrhoea [Unknown]
  - Pyrexia [Unknown]
  - Fatigue [Unknown]
  - Bone pain [Unknown]

NARRATIVE: CASE EVENT DATE: 20240815
